FAERS Safety Report 9248977 (Version 1)
Quarter: 2013Q1

REPORT INFORMATION
  Report Type: Spontaneous
  Country: US (occurrence: None)
  Receive Date: 20130305
  Receipt Date: 20130305
  Transmission Date: 20140127
  Serious: Yes (Other)
  Sender: FDA-Public Use
  Company Number: 163-21880-12093235

PATIENT
  Age: 44 Year
  Sex: Male

DRUGS (7)
  1. REVLIMID [Suspect]
     Dosage: 7.5 MG, 21 IN 28 D, PO
     Route: 048
     Dates: start: 20120411
  2. CALTRATE D (CALCIUM CARBONATE) [Concomitant]
  3. AMLODIPINE (AMLODIPINE) [Concomitant]
  4. ZOMETA (ZOLEDRONIC ACID) [Concomitant]
  5. CARVEDILOL (CARVEDILOL) [Concomitant]
  6. FOLIC ACID(FOLIC ACID) [Concomitant]
  7. RANITIDINE (RANITIDINE) [Concomitant]

REACTIONS (1)
  - Nasopharyngitis [None]
